FAERS Safety Report 15767261 (Version 2)
Quarter: 2019Q1

REPORT INFORMATION
  Report Type: Spontaneous
  Country: IT (occurrence: IT)
  Receive Date: 20181227
  Receipt Date: 20190103
  Transmission Date: 20190417
  Serious: Yes (Hospitalization, Other)
  Sender: FDA-Public Use
  Company Number: IT-PFIZER INC-2018529431

PATIENT
  Age: 71 Year
  Sex: Female

DRUGS (2)
  1. FARLUTAL [Suspect]
     Active Substance: MEDROXYPROGESTERONE ACETATE
     Indication: ENDOMETRIAL CANCER
     Dosage: 500 MG, DAILY
     Route: 048
     Dates: start: 201811, end: 201812
  2. PRISMA [MESOGLYCAN] [Concomitant]
     Dosage: UNK
     Dates: start: 201811, end: 20181218

REACTIONS (1)
  - Cerebrovascular accident [Recovering/Resolving]

NARRATIVE: CASE EVENT DATE: 20181218
